FAERS Safety Report 18376029 (Version 2)
Quarter: 2020Q4

REPORT INFORMATION
  Report Type: Spontaneous
  Country: JP (occurrence: JP)
  Receive Date: 20201013
  Receipt Date: 20201118
  Transmission Date: 20210114
  Serious: Yes (Hospitalization)
  Sender: FDA-Public Use
  Company Number: NVSJ2020JP001565

PATIENT
  Age: 71 Year
  Sex: Female
  Weight: 44 kg

DRUGS (9)
  1. EQUA TAB [Suspect]
     Active Substance: VILDAGLIPTIN
     Indication: TYPE 2 DIABETES MELLITUS
     Dosage: 50 MG, BID
     Route: 048
     Dates: end: 20190806
  2. GLIMEPIRIDE. [Concomitant]
     Active Substance: GLIMEPIRIDE
     Indication: TYPE 2 DIABETES MELLITUS
     Dosage: 0.5 MG, QD
     Route: 048
     Dates: end: 20190313
  3. NEORAL [Suspect]
     Active Substance: CYCLOSPORINE
     Indication: PRURITUS
     Dosage: 50 MG, BID
     Route: 048
     Dates: start: 20200110, end: 20200128
  4. TRAZENTA [Suspect]
     Active Substance: LINAGLIPTIN
     Indication: TYPE 2 DIABETES MELLITUS
     Dosage: UNK
     Route: 065
  5. LINAGLIPTIN [Suspect]
     Active Substance: LINAGLIPTIN
     Indication: TYPE 2 DIABETES MELLITUS
     Dosage: 5 MG, QD
     Route: 048
     Dates: start: 20190903, end: 20200120
  6. INSULIN [Concomitant]
     Active Substance: INSULIN NOS
     Indication: TYPE 2 DIABETES MELLITUS
     Dosage: UNK
     Route: 065
  7. METFORMIN HYDROCHLORIDE. [Concomitant]
     Active Substance: METFORMIN HYDROCHLORIDE
     Indication: TYPE 2 DIABETES MELLITUS
     Dosage: UNK
     Route: 065
     Dates: start: 201802
  8. NEORAL [Suspect]
     Active Substance: CYCLOSPORINE
     Indication: RASH
  9. GLICLAZIDE [Concomitant]
     Active Substance: GLICLAZIDE
     Indication: TYPE 2 DIABETES MELLITUS
     Dosage: 20 MG, QD
     Route: 048
     Dates: start: 20190313, end: 20200120

REACTIONS (15)
  - Skin mass [Unknown]
  - Oedema [Unknown]
  - Rash [Recovering/Resolving]
  - Pruritus [Recovering/Resolving]
  - Sinus tachycardia [Unknown]
  - Blister rupture [Unknown]
  - Product use in unapproved indication [Unknown]
  - Erythema [Unknown]
  - Papule [Unknown]
  - Pemphigoid [Recovering/Resolving]
  - Dermatitis bullous [Unknown]
  - Blister [Recovering/Resolving]
  - Skin exfoliation [Unknown]
  - Eosinophilia [Unknown]
  - Prurigo [Unknown]

NARRATIVE: CASE EVENT DATE: 201907
